FAERS Safety Report 20157044 (Version 1)
Quarter: 2021Q4

REPORT INFORMATION
  Report Type: Spontaneous
  Country: AU (occurrence: AU)
  Receive Date: 20211207
  Receipt Date: 20211207
  Transmission Date: 20220303
  Serious: Yes (Hospitalization)
  Sender: FDA-Public Use
  Company Number: AU-BAYER-2021A257725

PATIENT
  Age: 87 Year
  Sex: Female

DRUGS (1)
  1. LORATADINE [Suspect]
     Active Substance: LORATADINE
     Indication: Pyrexia
     Dosage: UNK
     Dates: end: 20211129

REACTIONS (3)
  - Cerebrovascular accident [Recovered/Resolved]
  - Salivary hypersecretion [Recovered/Resolved]
  - Off label use [None]

NARRATIVE: CASE EVENT DATE: 20211001
